FAERS Safety Report 9641584 (Version 2)
Quarter: 2013Q4

REPORT INFORMATION
  Report Type: Spontaneous
  Country: US (occurrence: US)
  Receive Date: 20131023
  Receipt Date: 20131105
  Transmission Date: 20140711
  Serious: Yes (Hospitalization)
  Sender: FDA-Public Use
  Company Number: US-GLAXOSMITHKLINE-A1031557A

PATIENT
  Age: 58 Year
  Sex: Female

DRUGS (7)
  1. LOVAZA [Suspect]
     Indication: BLOOD TRIGLYCERIDES INCREASED
     Dosage: 2CAP TWICE PER DAY
     Route: 048
     Dates: start: 20110301
  2. UROCIT-K [Concomitant]
  3. ALLOPURINOL [Concomitant]
  4. NOVOLOG [Concomitant]
  5. LANTUS [Concomitant]
  6. NYSTATIN [Concomitant]
  7. LOSARTAN [Concomitant]

REACTIONS (3)
  - Therapeutic response unexpected [Unknown]
  - Nephrolithiasis [Unknown]
  - Treatment noncompliance [Recovered/Resolved]
